FAERS Safety Report 11244452 (Version 2)
Quarter: 2015Q3

REPORT INFORMATION
  Report Type: Spontaneous
  Country: US (occurrence: US)
  Receive Date: 20150707
  Receipt Date: 20150902
  Transmission Date: 20151125
  Serious: No
  Sender: FDA-Public Use
  Company Number: US-009507513-1506USA004124

PATIENT
  Age: 27 Year
  Sex: Female

DRUGS (2)
  1. NEXPLANON [Suspect]
     Active Substance: ETONOGESTREL
     Indication: CONTRACEPTION
     Dosage: 1 ROD/3 YEARS, SECOND ROD
     Route: 059
     Dates: start: 20150520, end: 20150731
  2. NEXPLANON [Suspect]
     Active Substance: ETONOGESTREL
     Dosage: 1 ROD/3 YEARS, THIRD ROD
     Route: 059
     Dates: start: 20150731

REACTIONS (6)
  - Application site discomfort [Recovered/Resolved with Sequelae]
  - Implant site irritation [Recovered/Resolved with Sequelae]
  - Implant site inflammation [Recovered/Resolved with Sequelae]
  - Device dislocation [Recovered/Resolved with Sequelae]
  - Burning sensation [Recovered/Resolved with Sequelae]
  - Pain of skin [Recovered/Resolved with Sequelae]

NARRATIVE: CASE EVENT DATE: 20150601
